FAERS Safety Report 12199637 (Version 1)
Quarter: 2016Q1

REPORT INFORMATION
  Report Type: Spontaneous
  Country: BR (occurrence: BR)
  Receive Date: 20160322
  Receipt Date: 20160322
  Transmission Date: 20160526
  Serious: Yes (Other)
  Sender: FDA-Public Use
  Company Number: BR-AMGEN-BRASP2016034287

PATIENT
  Age: 73 Year
  Sex: Female
  Weight: 65 kg

DRUGS (4)
  1. OMEPRAZOLE. [Concomitant]
     Active Substance: OMEPRAZOLE
     Dosage: 20 MG, DAILY
  2. ENBREL [Suspect]
     Active Substance: ETANERCEPT
     Indication: PSORIATIC ARTHROPATHY
     Dosage: 50 MG, 1X/WEEK
     Route: 065
     Dates: start: 20160204
  3. LOSARTAN. [Concomitant]
     Active Substance: LOSARTAN
     Dosage: 1 TABLET IN THE MORNING AND 1 TABLET AT NIGHT
  4. DEPURA [Concomitant]
     Active Substance: CHOLECALCIFEROL
     Dosage: 2 DROPS, DAILY

REACTIONS (4)
  - Influenza [Unknown]
  - Dengue fever [Unknown]
  - Visual impairment [Not Recovered/Not Resolved]
  - Cough [Unknown]
